FAERS Safety Report 24442306 (Version 2)
Quarter: 2024Q4

REPORT INFORMATION
  Report Type: Spontaneous
  Country: US (occurrence: US)
  Receive Date: 20241016
  Receipt Date: 20241017
  Transmission Date: 20250115
  Serious: No
  Sender: ROCHE
  Company Number: US-ROCHE-3535681

PATIENT
  Sex: Male

DRUGS (1)
  1. HEMLIBRA [Suspect]
     Active Substance: EMICIZUMAB-KXWH
     Indication: Coagulation factor deficiency
     Dosage: STRENGTH: 105 MG/0,7 ML
     Route: 058
     Dates: start: 202207

REACTIONS (2)
  - Gastrointestinal haemorrhage [Unknown]
  - Haematochezia [Unknown]
